FAERS Safety Report 17730177 (Version 3)
Quarter: 2021Q4

REPORT INFORMATION
  Report Type: Spontaneous
  Country: US (occurrence: US)
  Receive Date: 20200430
  Receipt Date: 20211012
  Transmission Date: 20220303
  Serious: Yes (Other)
  Sender: FDA-Public Use
  Company Number: 2020SE54380

PATIENT
  Age: 58 Year
  Sex: Female

DRUGS (42)
  1. NEXIUM 24HR [Suspect]
     Active Substance: ESOMEPRAZOLE MAGNESIUM
     Route: 048
     Dates: start: 198901, end: 201808
  2. NEXIUM [Suspect]
     Active Substance: ESOMEPRAZOLE MAGNESIUM
     Indication: Gastrooesophageal reflux disease
     Route: 048
     Dates: start: 20120313, end: 20121029
  3. PRILOSEC [Suspect]
     Active Substance: OMEPRAZOLE MAGNESIUM
     Indication: Gastrooesophageal reflux disease
     Route: 048
     Dates: start: 198901, end: 201808
  4. PRILOSEC [Suspect]
     Active Substance: OMEPRAZOLE MAGNESIUM
     Indication: Gastrooesophageal reflux disease
     Dosage: GENERIC
     Route: 065
     Dates: start: 2009
  5. PREVACID [Suspect]
     Active Substance: LANSOPRAZOLE
     Indication: Gastrooesophageal reflux disease
     Route: 065
     Dates: start: 198901, end: 201808
  6. PREVACID [Suspect]
     Active Substance: LANSOPRAZOLE
     Indication: Gastrooesophageal reflux disease
     Route: 065
     Dates: start: 1995, end: 2009
  7. CARBAMAZEPINE [Concomitant]
     Active Substance: CARBAMAZEPINE
     Indication: Neuralgia
     Dates: start: 20121113, end: 20200304
  8. VITAMIN D [Concomitant]
     Active Substance: VITAMIN D NOS
     Indication: Vitamin supplementation
  9. FOLIC ACID [Concomitant]
     Active Substance: FOLIC ACID
     Indication: Anaemia
  10. PROBIOTICS NOS [Concomitant]
     Active Substance: PROBIOTICS NOS
     Indication: Anaemia
  11. ASPIRIN [Concomitant]
     Active Substance: ASPIRIN
     Indication: Stent placement
  12. BENADRYL [Concomitant]
     Active Substance: DIPHENHYDRAMINE HYDROCHLORIDE
     Indication: Hypersensitivity
  13. TUMS [Concomitant]
     Active Substance: CALCIUM CARBONATE
  14. ROLAIDS [Concomitant]
     Active Substance: CALCIUM CARBONATE\MAGNESIUM HYDROXIDE
  15. PEPTO-BISMOL [Concomitant]
     Active Substance: BISMUTH SUBSALICYLATE
  16. FUROSEMIDE [Concomitant]
     Active Substance: FUROSEMIDE
  17. BUPROPION [Concomitant]
     Active Substance: BUPROPION
  18. MICARDIS [Concomitant]
     Active Substance: TELMISARTAN
  19. TRIAMCINOLONE [Concomitant]
     Active Substance: TRIAMCINOLONE
  20. SENOKOT [Concomitant]
     Active Substance: SENNOSIDES
  21. SKELAXIN [Concomitant]
     Active Substance: METAXALONE
  22. ALENDRONATE [Concomitant]
     Active Substance: ALENDRONATE SODIUM
  23. ZAROXOLYN [Concomitant]
     Active Substance: METOLAZONE
  24. WELLBUTRIN [Concomitant]
     Active Substance: BUPROPION HYDROCHLORIDE
  25. ABILIFY [Concomitant]
     Active Substance: ARIPIPRAZOLE
  26. ULORIC [Concomitant]
     Active Substance: FEBUXOSTAT
  27. ALLOPURINOL [Concomitant]
     Active Substance: ALLOPURINOL
  28. DULOXETINE [Concomitant]
     Active Substance: DULOXETINE
  29. COLCHICINE [Concomitant]
     Active Substance: COLCHICINE
  30. MILNACIPRAN [Concomitant]
     Active Substance: MILNACIPRAN
  31. METHADONE [Concomitant]
     Active Substance: METHADONE HYDROCHLORIDE
  32. PROMETHEGAN [Concomitant]
     Active Substance: PROMETHAZINE HYDROCHLORIDE
  33. ESTRADIOL [Concomitant]
     Active Substance: ESTRADIOL
  34. TIZANIDINE [Concomitant]
     Active Substance: TIZANIDINE
  35. BACLOFEN [Concomitant]
     Active Substance: BACLOFEN
  36. METRONIDAZOLE [Concomitant]
     Active Substance: METRONIDAZOLE
  37. CLOTRIMAZOLE [Concomitant]
     Active Substance: CLOTRIMAZOLE
  38. METHADONE [Concomitant]
     Active Substance: METHADONE HYDROCHLORIDE
  39. LEVOTHYROXINE [Concomitant]
     Active Substance: LEVOTHYROXINE
  40. HYDROCODONE [Concomitant]
     Active Substance: HYDROCODONE
  41. METHYLPREDNISOLONE [Concomitant]
     Active Substance: METHYLPREDNISOLONE
  42. BANOPHEN [Concomitant]
     Active Substance: DIPHENHYDRAMINE HYDROCHLORIDE

REACTIONS (4)
  - Chronic kidney disease [Not Recovered/Not Resolved]
  - Nephrogenic anaemia [Unknown]
  - Secondary hyperthyroidism [Unknown]
  - Acute kidney injury [Unknown]

NARRATIVE: CASE EVENT DATE: 20140101
